FAERS Safety Report 23318118 (Version 1)
Quarter: 2023Q4

REPORT INFORMATION
  Report Type: Spontaneous
  Country: CA (occurrence: CA)
  Receive Date: 20231220
  Receipt Date: 20231220
  Transmission Date: 20240110
  Serious: No
  Sender: FDA-Public Use
  Company Number: CA-TOLMAR, INC.-23CA045138

PATIENT
  Age: 79 Year
  Sex: Male

DRUGS (4)
  1. ELIGARD [Suspect]
     Active Substance: LEUPROLIDE ACETATE
     Indication: Neoplasm malignant
     Dosage: 22.5 MILLIGRAM
     Dates: start: 20231129
  2. ELIGARD [Suspect]
     Active Substance: LEUPROLIDE ACETATE
     Dosage: 22.5 MILLIGRAM
     Dates: start: 20230119
  3. ELIGARD [Suspect]
     Active Substance: LEUPROLIDE ACETATE
     Indication: Neoplasm malignant
     Dosage: UNK
  4. XTANDI [Concomitant]
     Active Substance: ENZALUTAMIDE
     Indication: Neoplasm malignant

REACTIONS (2)
  - Intercepted product preparation error [Unknown]
  - Needle issue [Unknown]

NARRATIVE: CASE EVENT DATE: 20231129
